FAERS Safety Report 7320591-0 (Version None)
Quarter: 2011Q1

REPORT INFORMATION
  Report Type: 
  Country: None (occurrence: None)
  Receive Date: 20110215
  Receipt Date: 20110207
  Transmission Date: 20110831
  Serious: Yes (Life-Threatening, Other)
  Sender: FDA-Public Use
  Company Number: JHP201100027

PATIENT
  Age: 24 Year
  Sex: Female

DRUGS (11)
  1. SUCCINYLCHOLINE CHLORIDE [Concomitant]
  2. VECURONIUM BROMIDE [Concomitant]
  3. CARBOPROST (CARBOPROST) [Suspect]
     Indication: UTERINE ATONY
     Dosage: 1 ML (250 MCG) X 3 - INTRAMYOMETRIALLY, INTRAMUSCULAR
     Route: 030
  4. METHYLDOPA [Concomitant]
  5. PITOCIN [Suspect]
     Indication: UTERINE ATONY
     Dosage: 20 UNITS AFTER DELIVERY OF BOTH BABIES, INTRAVENOUS, 1 ML (10 UNITS)X3-INTRAMYOMETRIALLY, INTRAMUSCU
     Route: 030
  6. NITROUS OXIDE W/ OXYGEN [Concomitant]
  7. ISOFLURANE [Concomitant]
  8. NIFEDIPINE [Concomitant]
  9. FENTANYL CITRATE [Concomitant]
  10. ATENOLOL [Concomitant]
  11. THIOPENTAL SODIUM [Concomitant]

REACTIONS (8)
  - APPARENT DEATH [None]
  - ABNORMAL BEHAVIOUR [None]
  - BRAIN OEDEMA [None]
  - DYSARTHRIA [None]
  - BRONCHOSPASM [None]
  - CARDIAC ARREST [None]
  - DISORIENTATION [None]
  - AMNESIA [None]
